FAERS Safety Report 21046372 (Version 2)
Quarter: 2022Q4

REPORT INFORMATION
  Report Type: Spontaneous
  Country: DE (occurrence: DE)
  Receive Date: 20220706
  Receipt Date: 20221210
  Transmission Date: 20230113
  Serious: Yes (Other)
  Sender: FDA-Public Use
  Company Number: DE-BRISTOL-MYERS SQUIBB COMPANY-2022-062571

PATIENT
  Age: 76 Year
  Sex: Male

DRUGS (1)
  1. REBLOZYL [Suspect]
     Active Substance: LUSPATERCEPT-AAMT
     Indication: Myelodysplastic syndrome
     Dosage: DOSE : UNAVAILABLE;     FREQ : UNAVAILABLE
     Route: 065

REACTIONS (2)
  - Skin disorder [Unknown]
  - Drug dependence [Unknown]
